FAERS Safety Report 10192802 (Version 1)
Quarter: 2014Q2

REPORT INFORMATION
  Report Type: Spontaneous
  Country: AU (occurrence: AU)
  Receive Date: 20140523
  Receipt Date: 20140523
  Transmission Date: 20141212
  Serious: Yes (Hospitalization)
  Sender: FDA-Public Use
  Company Number: PHHY2014AU059510

PATIENT
  Age: 54 Year
  Sex: Female

DRUGS (8)
  1. VORICONAZOLE [Suspect]
     Indication: ABSCESS FUNGAL
     Dosage: 200 MG, BID
     Route: 042
  2. METHOTREXATE [Concomitant]
     Indication: DIFFUSE LARGE B-CELL LYMPHOMA
     Route: 037
  3. CYTARABINE [Concomitant]
     Indication: DIFFUSE LARGE B-CELL LYMPHOMA
  4. HYDROCORTISONE [Concomitant]
     Indication: DIFFUSE LARGE B-CELL LYMPHOMA
  5. CASPOFUNGIN [Concomitant]
     Indication: ABSCESS FUNGAL
     Dosage: 50 MG DAILY
     Route: 042
  6. PREDNISOLONE [Concomitant]
     Dosage: 15 MG DAILY
     Route: 048
  7. METOCLOPRAMIDE [Concomitant]
     Dosage: 10 MG, TID
     Route: 048
  8. METOCLOPRAMIDE [Concomitant]
     Dosage: 10 MG, TID
     Route: 042

REACTIONS (8)
  - Hypokalaemia [Unknown]
  - Hypomagnesaemia [Unknown]
  - Cardiac arrest [Recovered/Resolved]
  - Circulatory collapse [Recovered/Resolved]
  - Liver disorder [Unknown]
  - Torsade de pointes [Recovered/Resolved]
  - Ventricular fibrillation [Recovered/Resolved]
  - Electrocardiogram QT prolonged [Recovered/Resolved]
